FAERS Safety Report 11693359 (Version 1)
Quarter: 2015Q4

REPORT INFORMATION
  Report Type: Report from Study
  Country: ES (occurrence: ES)
  Receive Date: 20151103
  Receipt Date: 20151103
  Transmission Date: 20160304
  Serious: Yes (Hospitalization)
  Sender: FDA-Public Use
  Company Number: ES-PFIZER INC-2015367534

PATIENT
  Age: 67 Year
  Sex: Male

DRUGS (2)
  1. SEGURIL [Interacting]
     Active Substance: FUROSEMIDE
     Indication: ASCITES
     Dosage: 120 MG, 1X/DAY
     Route: 048
     Dates: start: 2010, end: 20100715
  2. ALDACTONE [Suspect]
     Active Substance: SPIRONOLACTONE
     Indication: ASCITES
     Dosage: 400 MG, 1X/DAY
     Route: 048
     Dates: start: 2010, end: 20100715

REACTIONS (3)
  - Disorientation [Recovered/Resolved]
  - Hyponatraemia [Recovered/Resolved]
  - Drug interaction [Recovered/Resolved]

NARRATIVE: CASE EVENT DATE: 20100715
